FAERS Safety Report 20749046 (Version 1)
Quarter: 2022Q2

REPORT INFORMATION
  Report Type: Other
  Country: CA (occurrence: CA)
  Receive Date: 20220426
  Receipt Date: 20220426
  Transmission Date: 20220720
  Serious: Yes (Hospitalization)
  Sender: FDA-Public Use
  Company Number: CA-HLS-202200854

PATIENT
  Age: 35 Year
  Sex: Male

DRUGS (3)
  1. CLOZAPINE [Suspect]
     Active Substance: CLOZAPINE
     Dosage: AT BEDTIME
     Route: 065
  2. OLANZAPINE [Concomitant]
     Active Substance: OLANZAPINE
     Dosage: AS NEEDED
     Route: 065
  3. ATROPINE [Concomitant]
     Active Substance: ATROPINE
     Dosage: AT BEDTIME
     Route: 060

REACTIONS (10)
  - Confusional state [Unknown]
  - Hyperhidrosis [Unknown]
  - Blood creatine phosphokinase increased [Recovered/Resolved]
  - Rhabdomyolysis [Unknown]
  - Agitation [Recovered/Resolved]
  - Hyponatraemia [Recovered/Resolved]
  - Tachycardia [Unknown]
  - Tremor [Unknown]
  - Abdominal pain [Unknown]
  - Vomiting [Unknown]
